FAERS Safety Report 12491944 (Version 1)
Quarter: 2016Q2

REPORT INFORMATION
  Report Type: Spontaneous
  Country: US (occurrence: None)
  Receive Date: 20160622
  Receipt Date: 20160622
  Transmission Date: 20160815
  Serious: Yes (Disabling)
  Sender: FDA-Public Use
  Company Number: None

PATIENT
  Age: 27 Year
  Sex: Male
  Weight: 97.98 kg

DRUGS (4)
  1. ARIPIPRAZOLE 30MG, 30 MG TEVA, BEFORE THAT IT WAS OTSUKA [Suspect]
     Active Substance: ARIPIPRAZOLE
     Indication: BIPOLAR DISORDER
     Dosage: 30 TABLET(S) AT BEDTIME TAKEN BY MOUTH
     Route: 048
     Dates: start: 20100301, end: 20160613
  2. CYMBALTA [Concomitant]
     Active Substance: DULOXETINE HYDROCHLORIDE
  3. LATUDA [Concomitant]
     Active Substance: LURASIDONE HYDROCHLORIDE
  4. KLONOPIN [Concomitant]
     Active Substance: CLONAZEPAM

REACTIONS (4)
  - Dyspepsia [None]
  - Constipation [None]
  - Nausea [None]
  - Blood triglycerides increased [None]

NARRATIVE: CASE EVENT DATE: 20160531
